FAERS Safety Report 13956252 (Version 1)
Quarter: 2017Q3

REPORT INFORMATION
  Report Type: Spontaneous
  Country: US (occurrence: US)
  Receive Date: 20170911
  Receipt Date: 20170911
  Transmission Date: 20171128
  Serious: No
  Sender: FDA-Public Use
  Company Number: US-ASTELLAS-2017US009921

PATIENT
  Sex: Female

DRUGS (4)
  1. CRESEMBA [Suspect]
     Active Substance: ISAVUCONAZONIUM SULFATE
     Indication: SCOPULARIOPSIS INFECTION
  2. CRESEMBA [Suspect]
     Active Substance: ISAVUCONAZONIUM SULFATE
     Indication: LUNG TRANSPLANT
     Dosage: 372 MG, EVERY 8 HOURS  (TWO 186 MILLIGRAM TABLETS EVERY 8 HOURS, 6 DOSES)
     Route: 048
     Dates: start: 20170228
  3. CRESEMBA [Suspect]
     Active Substance: ISAVUCONAZONIUM SULFATE
     Indication: FUNGAL INFECTION
  4. CRESEMBA [Suspect]
     Active Substance: ISAVUCONAZONIUM SULFATE
     Indication: UPPER RESPIRATORY TRACT INFECTION
     Dosage: 372 MG, 2 CAPSULES DAILY)
     Route: 048
     Dates: end: 20170313

REACTIONS (1)
  - Off label use [Unknown]
